FAERS Safety Report 7443569-5 (Version None)
Quarter: 2011Q2

REPORT INFORMATION
  Report Type: 
  Country: None (occurrence: None)
  Receive Date: 20110428
  Receipt Date: 20110120
  Transmission Date: 20111010
  Serious: No
  Sender: FDA-Public Use
  Company Number: US-BAUSCH-2009BL006430

PATIENT
  Age: 69 Year
  Sex: Female

DRUGS (4)
  1. LISINOPRIL [Concomitant]
     Indication: HYPERTENSION
     Route: 048
     Dates: start: 20060101
  2. ERYTHROMYCIN [Concomitant]
     Indication: EYELID MARGIN CRUSTING
     Route: 047
  3. TOBRAMYCIN AND DEXAMETHASONE [Suspect]
     Indication: ANTIBIOTIC PROPHYLAXIS
     Route: 047
     Dates: start: 20091202, end: 20091202
  4. SULFACETAMIDE SODIUM [Suspect]
     Indication: ANTIBIOTIC PROPHYLAXIS
     Route: 047
     Dates: start: 20091203, end: 20091206

REACTIONS (9)
  - FACE OEDEMA [None]
  - DRUG HYPERSENSITIVITY [None]
  - EYELID OEDEMA [None]
  - LACRIMATION INCREASED [None]
  - VISION BLURRED [None]
  - FACIAL PAIN [None]
  - ERYTHEMA [None]
  - RASH [None]
  - HYPERSENSITIVITY [None]
